FAERS Safety Report 6692924-X (Version None)
Quarter: 2010Q2

REPORT INFORMATION
  Report Type: 
  Country: None (occurrence: None)
  Receive Date: 20100422
  Receipt Date: 20100409
  Transmission Date: 20101027
  Serious: Yes (Other)
  Sender: FDA-Public Use
  Company Number: GB-ELI_LILLY_AND_COMPANY-GB201004002348

PATIENT
  Age: 59 Year
  Weight: 82 kg

DRUGS (2)
  1. CYMBALTA [Suspect]
     Indication: DEPRESSION
     Dosage: 60 MG, UNKNOWN
     Route: 048
     Dates: start: 20090819, end: 20100315
  2. AMITRIPTYLINE [Concomitant]
     Indication: STRESS
     Dosage: 25 MG, UNKNOWN
     Route: 048
     Dates: start: 20090608, end: 20090727

REACTIONS (2)
  - HEPATIC FUNCTION ABNORMAL [None]
  - INCREASED TENDENCY TO BRUISE [None]
